FAERS Safety Report 24004730 (Version 2)
Quarter: 2024Q3

REPORT INFORMATION
  Report Type: Report from Study
  Country: US (occurrence: US)
  Receive Date: 20240624
  Receipt Date: 20240702
  Transmission Date: 20241016
  Serious: Yes (Hospitalization)
  Sender: EISAI
  Company Number: US-Eisai-EC-2024-168218

PATIENT
  Age: 63 Year
  Sex: Male
  Weight: 68.0 kg

DRUGS (3)
  1. LENVATINIB [Suspect]
     Active Substance: LENVATINIB
     Indication: Neuroendocrine carcinoma of prostate
     Dosage: FREQUENCY UNKNOWN
     Route: 048
     Dates: start: 20240509, end: 20240606
  2. PEMBROLIZUMAB [Suspect]
     Active Substance: PEMBROLIZUMAB
     Indication: Neuroendocrine carcinoma of prostate
     Dosage: FREQUENCY UNKNOWN
     Route: 042
     Dates: start: 20240509, end: 20240530
  3. OXYCODONE [Concomitant]
     Active Substance: OXYCODONE
     Dates: start: 20240515

REACTIONS (1)
  - Cancer pain [Recovered/Resolved with Sequelae]

NARRATIVE: CASE EVENT DATE: 20240606
